FAERS Safety Report 13242088 (Version 1)
Quarter: 2017Q1

REPORT INFORMATION
  Report Type: Spontaneous
  Country: FR (occurrence: FR)
  Receive Date: 20170217
  Receipt Date: 20170217
  Transmission Date: 20170428
  Serious: Yes (Disabling)
  Sender: FDA-Public Use
  Company Number: FR-009507513-1702FRA004477

PATIENT
  Age: 34 Year
  Sex: Male

DRUGS (4)
  1. GONADOTROPHINE CHORIONIQUE ENDO 1500 UI/1ML [Suspect]
     Active Substance: GONADOTROPHIN, CHORIONIC
     Indication: INFERTILITY
     Dosage: 1500 IU, TIW
     Route: 058
     Dates: start: 201501, end: 201502
  2. GONAL-F [Suspect]
     Active Substance: FOLLITROPIN
     Dosage: UNK
     Route: 058
     Dates: start: 201510, end: 201511
  3. GONADOTROPHINE CHORIONIQUE ENDO 1500 UI/1ML [Suspect]
     Active Substance: GONADOTROPHIN, CHORIONIC
     Dosage: UNK
     Route: 058
     Dates: start: 201510, end: 201511
  4. GONAL-F [Suspect]
     Active Substance: FOLLITROPIN
     Indication: INFERTILITY
     Dosage: 100 IU, 3 TIMES WEEKLY
     Route: 058
     Dates: start: 201501, end: 201502

REACTIONS (2)
  - Sudden hearing loss [Recovered/Resolved with Sequelae]
  - Ear pain [Recovered/Resolved]

NARRATIVE: CASE EVENT DATE: 201501
